FAERS Safety Report 18034678 (Version 2)
Quarter: 2020Q3

REPORT INFORMATION
  Report Type: Spontaneous
  Country: CA (occurrence: CA)
  Receive Date: 20200716
  Receipt Date: 20200724
  Transmission Date: 20201103
  Serious: Yes (Hospitalization, Other)
  Sender: FDA-Public Use
  Company Number: CA-NOVOPROD-739432

PATIENT
  Age: 67 Year
  Sex: Female
  Weight: 85.5 kg

DRUGS (7)
  1. ZONOVATE [Suspect]
     Active Substance: TUROCTOCOG ALFA
     Dosage: UNK
     Route: 065
  2. ZONOVATE [Suspect]
     Active Substance: TUROCTOCOG ALFA
     Indication: FACTOR VIII DEFICIENCY
     Dosage: 500 MG, TID
     Route: 065
     Dates: start: 20200702, end: 20200704
  3. ZONOVATE [Suspect]
     Active Substance: TUROCTOCOG ALFA
     Dosage: 500 MG, QD(MORNING)
     Route: 065
     Dates: start: 20200706, end: 20200709
  4. CANDESARTAN. [Concomitant]
     Active Substance: CANDESARTAN
     Indication: HYPERTENSION
     Dosage: 8 MG, QD
     Route: 048
     Dates: start: 20190222
  5. ZONOVATE [Suspect]
     Active Substance: TUROCTOCOG ALFA
     Dosage: 500 MG, BID
     Route: 065
     Dates: start: 20200705
  6. HYDROCHLOROTHIAZIDE. [Concomitant]
     Active Substance: HYDROCHLOROTHIAZIDE
     Indication: HYPERTENSION
     Dosage: 25 MG, QD(MORNING)
     Route: 058
     Dates: start: 20190222
  7. LORAZEPAM. [Concomitant]
     Active Substance: LORAZEPAM
     Indication: PRODUCT USED FOR UNKNOWN INDICATION
     Dosage: 0.5 MG TAKES 1 TO 2 PILLS TWICE A DAY
     Route: 060

REACTIONS (3)
  - Procedural shock [Not Recovered/Not Resolved]
  - Pulmonary embolism [Not Recovered/Not Resolved]
  - Surgery [Unknown]

NARRATIVE: CASE EVENT DATE: 20200702
